FAERS Safety Report 16859592 (Version 1)
Quarter: 2019Q3

REPORT INFORMATION
  Report Type: Spontaneous
  Country: CN (occurrence: CN)
  Receive Date: 20190927
  Receipt Date: 20190927
  Transmission Date: 20191005
  Serious: Yes (Other)
  Sender: FDA-Public Use
  Company Number: CN-ASPEN-GLO2019CN010110

PATIENT
  Age: 2 Year
  Sex: Female

DRUGS (31)
  1. IDARUBICIN [Suspect]
     Active Substance: IDARUBICIN
     Indication: STEM CELL TRANSPLANT
     Route: 065
  2. GRANULOCYTE COLONY STIMULATING FACTOR [Suspect]
     Active Substance: GRANULOCYTE COLONY-STIMULATING FACTOR NOS
     Indication: PREMEDICATION
  3. METHOTREXATE. [Suspect]
     Active Substance: METHOTREXATE
     Indication: PROPHYLAXIS AGAINST GRAFT VERSUS HOST DISEASE
     Dosage: LOW DOSE
     Route: 065
  4. DECITABINE. [Suspect]
     Active Substance: DECITABINE
     Indication: BONE MARROW CONDITIONING REGIMEN
  5. FLUDARABINE [Suspect]
     Active Substance: FLUDARABINE PHOSPHATE
     Indication: PREMEDICATION
  6. GRANULOCYTE COLONY STIMULATING FACTOR [Suspect]
     Active Substance: GRANULOCYTE COLONY-STIMULATING FACTOR NOS
     Indication: STEM CELL TRANSPLANT
     Route: 065
  7. ALPROSTADIL. [Suspect]
     Active Substance: ALPROSTADIL
     Indication: PROPHYLAXIS
     Route: 065
  8. CYTARABINE. [Suspect]
     Active Substance: CYTARABINE
     Indication: BONE MARROW CONDITIONING REGIMEN
  9. CYCLOPHOSPHAMIDE. [Suspect]
     Active Substance: CYCLOPHOSPHAMIDE
     Indication: BONE MARROW CONDITIONING REGIMEN
  10. CYCLOPHOSPHAMIDE. [Suspect]
     Active Substance: CYCLOPHOSPHAMIDE
     Indication: PREMEDICATION
  11. URSODEOXYCHOLIC ACID [Suspect]
     Active Substance: URSODIOL
     Indication: PROPHYLAXIS
     Route: 065
  12. GANCICLOVIR. [Suspect]
     Active Substance: GANCICLOVIR
     Indication: INFECTION PROPHYLAXIS
     Route: 065
  13. BUSULFAN. [Suspect]
     Active Substance: BUSULFAN
     Indication: PREMEDICATION
  14. FLUDARABINE [Suspect]
     Active Substance: FLUDARABINE PHOSPHATE
     Indication: BONE MARROW CONDITIONING REGIMEN
  15. ATG [Suspect]
     Active Substance: LAPINE T-LYMPHOCYTE IMMUNE GLOBULIN
     Indication: PREMEDICATION
  16. SULFAMETHOXAZOLE [Suspect]
     Active Substance: SULFAMETHOXAZOLE
     Indication: INFECTION PROPHYLAXIS
     Route: 065
  17. BUSULFAN. [Suspect]
     Active Substance: BUSULFAN
     Indication: BONE MARROW CONDITIONING REGIMEN
  18. DECITABINE. [Suspect]
     Active Substance: DECITABINE
     Indication: STEM CELL TRANSPLANT
     Route: 065
  19. DECITABINE. [Suspect]
     Active Substance: DECITABINE
     Indication: PREMEDICATION
  20. CYCLOPHOSPHAMIDE. [Suspect]
     Active Substance: CYCLOPHOSPHAMIDE
     Indication: STEM CELL TRANSPLANT
     Route: 065
  21. FLUDARABINE [Suspect]
     Active Substance: FLUDARABINE PHOSPHATE
     Indication: STEM CELL TRANSPLANT
     Route: 065
  22. IDARUBICIN [Suspect]
     Active Substance: IDARUBICIN
     Indication: PREMEDICATION
  23. GRANULOCYTE COLONY STIMULATING FACTOR [Suspect]
     Active Substance: GRANULOCYTE COLONY-STIMULATING FACTOR NOS
     Indication: BONE MARROW CONDITIONING REGIMEN
  24. IDARUBICIN [Suspect]
     Active Substance: IDARUBICIN
     Indication: BONE MARROW CONDITIONING REGIMEN
  25. ATG [Suspect]
     Active Substance: LAPINE T-LYMPHOCYTE IMMUNE GLOBULIN
     Indication: STEM CELL TRANSPLANT
     Route: 065
  26. ATG [Suspect]
     Active Substance: LAPINE T-LYMPHOCYTE IMMUNE GLOBULIN
     Indication: BONE MARROW CONDITIONING REGIMEN
  27. MYCOPHENOLATE MOFETIL. [Suspect]
     Active Substance: MYCOPHENOLATE MOFETIL
     Indication: PROPHYLAXIS AGAINST GRAFT VERSUS HOST DISEASE
     Route: 065
  28. BUSULFAN. [Suspect]
     Active Substance: BUSULFAN
     Indication: STEM CELL TRANSPLANT
     Route: 065
  29. CYTARABINE. [Suspect]
     Active Substance: CYTARABINE
     Indication: STEM CELL TRANSPLANT
     Route: 065
  30. CYTARABINE. [Suspect]
     Active Substance: CYTARABINE
     Indication: PREMEDICATION
  31. ACYCLOVIR. [Suspect]
     Active Substance: ACYCLOVIR
     Indication: INFECTION PROPHYLAXIS
     Route: 065

REACTIONS (4)
  - Upper respiratory tract infection [Unknown]
  - Gastrointestinal infection [Recovered/Resolved]
  - Product use in unapproved indication [Unknown]
  - Stomatitis [Unknown]
